FAERS Safety Report 11247936 (Version 1)
Quarter: 2015Q3

REPORT INFORMATION
  Report Type: Spontaneous
  Country: US (occurrence: None)
  Receive Date: 20150707
  Receipt Date: 20150707
  Transmission Date: 20151125
  Serious: Yes (Life-Threatening, Hospitalization)
  Sender: FDA-Public Use
  Company Number: None

PATIENT
  Age: 67 Year
  Sex: Male
  Weight: 127.01 kg

DRUGS (27)
  1. CIPROFLOXACIN. [Suspect]
     Active Substance: CIPROFLOXACIN
  2. ATENOLOL (TENORNIM) [Concomitant]
     Dosage: TAKE ONE-HALF TABLET BY MOUTH
  3. INSULIN SYRINGE [Concomitant]
  4. LANTUS [Concomitant]
     Active Substance: INSULIN GLARGINE
     Dosage: UNDER THE SKIN AT BEDTIME
  5. NITROGLYCERYN ( NITROSTAT) [Concomitant]
     Dosage: UNDER THE TONG, PRN
  6. NOVOLOG [Concomitant]
     Active Substance: INSULIN ASPART
     Dosage: INTO THE SKIN, BEFORE MEALS
  7. METAMUCIL [Concomitant]
     Active Substance: PLANTAGO SEED
  8. LOPERAMIDE (IMODIUM) [Concomitant]
     Dosage: BY MOUTH, PRN
  9. ALBUTEROL-IPRATROPIUM  (COMBIVENT) [Concomitant]
     Dosage: 2 PUFFS INTO THE LUNG 4 TIMES DAILY
  10. FOSAMAX [Concomitant]
     Active Substance: ALENDRONATE SODIUM
     Dosage: BY MOUTH EVERY MORNING  (BEFORE BREAKFAST)
  11. CALCIUM-CHOLECALCIFEROL (CALTRATE 600 PLUS) [Concomitant]
     Dosage: BY MOUTH
  12. FLUTICASONE-SALMETEROL (ADVAIR DISKUS) [Concomitant]
     Dosage: 1 INHALATION OF DISKUS
  13. LANCETS MISC [Concomitant]
     Dosage: COMBO ROUTE
  14. OMEPRAZOLE (PRILOSEC) [Concomitant]
     Dosage: BY MOUTH
  15. ROSUVASTATIN  (CRESTOR) [Concomitant]
     Dosage: BY MOUTH
  16. GLUCOSE BLOOD TEST STRIPS [Concomitant]
     Dosage: 1 STRIP BY MISC.
  17. MI-ACID GAS RELIEF ( SIMETHICONE) [Concomitant]
     Dosage: CHEW AND SWALLOW ONE TABLET BY MOUTH AS NEEDED
  18. FLOMAX [Concomitant]
     Active Substance: TAMSULOSIN HYDROCHLORIDE
     Dosage: BY MOUTH, 1800
  19. CALCIUM CARBONATE (OS-CAL) [Concomitant]
     Dosage: BY MOUTH
  20. ELIQUIS [Concomitant]
     Active Substance: APIXABAN
  21. POLYETHYLENE GLUCOL POWDER (MIRALAX) [Concomitant]
     Dosage: BY MOUTH
  22. TYLENOL [Concomitant]
     Active Substance: ACETAMINOPHEN
     Dosage: 1-2 TAB. BY MOUTH, AS NEEDED
  23. ASPIRIN (ASPIR LOW) [Concomitant]
     Dosage: BY MOUTH
  24. CHOLECALCIFEROL (VITAMIN D3) [Concomitant]
     Dosage: BY MOUTH
  25. VITAMIN D [Concomitant]
     Active Substance: CHOLECALCIFEROL
  26. ALBUTEROL  (PROVENTIL HFA, VENTOLIN) [Concomitant]
     Dosage: INHALE 1-2 PUFFS INTO THE LUNG, AS NEEDED
     Route: 055
  27. METFORMIN  (GLUCOPHAGE) [Concomitant]
     Dosage: WITH MEALS

REACTIONS (2)
  - Septic shock [None]
  - Drug ineffective [None]

NARRATIVE: CASE EVENT DATE: 20120803
